FAERS Safety Report 21703731 (Version 1)
Quarter: 2022Q4

REPORT INFORMATION
  Report Type: Spontaneous
  Country: US (occurrence: US)
  Receive Date: 20221209
  Receipt Date: 20221209
  Transmission Date: 20230112
  Serious: No
  Sender: FDA-Public Use
  Company Number: US-UNITED THERAPEUTICS-UNT-2022-029346

PATIENT
  Sex: Male
  Weight: 102.04 kg

DRUGS (5)
  1. REMODULIN [Suspect]
     Active Substance: TREPROSTINIL
     Indication: Pulmonary arterial hypertension
     Dosage: 0.0349 ?G/KG (SELF-FILLED WITH 2.2 ML/CASSETTE AT A PUMP RATE OF 23 MCL/HOUR), CONTINUING
     Route: 058
     Dates: start: 2022
  2. REMODULIN [Suspect]
     Active Substance: TREPROSTINIL
     Dosage: UNK, CONTINUING
     Route: 058
     Dates: start: 20220926
  3. REMODULIN [Suspect]
     Active Substance: TREPROSTINIL
     Dosage: UNK (DOSE INCREASED), CONTINUING
     Route: 058
     Dates: start: 2022
  4. SILDENAFIL CITRATE [Concomitant]
     Active Substance: SILDENAFIL CITRATE
     Indication: Product used for unknown indication
     Dosage: UNK
     Route: 065
  5. AMBRISENTAN [Concomitant]
     Active Substance: AMBRISENTAN
     Indication: Product used for unknown indication
     Dosage: UNK
     Route: 065

REACTIONS (9)
  - Device failure [Not Recovered/Not Resolved]
  - Device leakage [Unknown]
  - Device leakage [Unknown]
  - Device breakage [Unknown]
  - Device failure [Unknown]
  - Device temperature issue [Unknown]
  - Device power source issue [Unknown]
  - Nausea [Recovered/Resolved]
  - Vomiting [Recovered/Resolved]

NARRATIVE: CASE EVENT DATE: 20220101
